FAERS Safety Report 20654565 (Version 1)
Quarter: 2022Q1

REPORT INFORMATION
  Report Type: Spontaneous
  Country: KR (occurrence: KR)
  Receive Date: 20220330
  Receipt Date: 20220330
  Transmission Date: 20220423
  Serious: No
  Sender: FDA-Public Use
  Company Number: KR-PFIZER INC-202200357830

PATIENT
  Age: 8 Year
  Sex: Female

DRUGS (1)
  1. GENOTROPIN [Suspect]
     Active Substance: SOMATROPIN
     Indication: Short stature
     Dosage: 3 IU, SIX TIMES A WEEK
     Dates: start: 20220209

REACTIONS (2)
  - Poor quality product administered [Unknown]
  - Product solubility abnormal [Unknown]
